FAERS Safety Report 20524940 (Version 7)
Quarter: 2023Q2

REPORT INFORMATION
  Report Type: Report from Study
  Country: US (occurrence: US)
  Receive Date: 20220228
  Receipt Date: 20230629
  Transmission Date: 20230722
  Serious: Yes (Other)
  Sender: FDA-Public Use
  Company Number: US-NOVARTISTESTPH-NVSC2022US046010

PATIENT
  Sex: Male

DRUGS (4)
  1. KESIMPTA [Suspect]
     Active Substance: OFATUMUMAB
     Indication: Multiple sclerosis
     Dosage: 20 MG/0.4 ML, QMO (STARTING ON WEEK 4)
     Route: 058
  2. KESIMPTA [Suspect]
     Active Substance: OFATUMUMAB
     Dosage: 20/0.4 MG/ML, QMO (STARTING ON WEEK 4)
     Route: 058
  3. KESIMPTA [Suspect]
     Active Substance: OFATUMUMAB
     Dosage: 20/0.4 MG/ML, Q4W
     Route: 058
  4. TIZANIDINE HYDROCHLORIDE [Concomitant]
     Active Substance: TIZANIDINE HYDROCHLORIDE
     Indication: Product used for unknown indication
     Dosage: UNK
     Route: 065

REACTIONS (14)
  - Secondary progressive multiple sclerosis [Unknown]
  - Impaired gastric emptying [Unknown]
  - Multiple sclerosis [Unknown]
  - Feeling abnormal [Unknown]
  - Mobility decreased [Unknown]
  - Gait inability [Unknown]
  - Bowel movement irregularity [Unknown]
  - Furuncle [Recovered/Resolved]
  - Fall [Unknown]
  - Musculoskeletal stiffness [Unknown]
  - Movement disorder [Unknown]
  - Malaise [Unknown]
  - Dysstasia [Unknown]
  - Drug ineffective [Not Recovered/Not Resolved]
